FAERS Safety Report 23049484 (Version 2)
Quarter: 2023Q4

REPORT INFORMATION
  Report Type: Spontaneous
  Country: US (occurrence: US)
  Receive Date: 20231010
  Receipt Date: 20231011
  Transmission Date: 20240110
  Serious: Yes (Hospitalization, Other)
  Sender: FDA-Public Use
  Company Number: US-LUNDBECK-DKLU3067639

PATIENT
  Age: 10 Year
  Sex: Male
  Weight: 68 kg

DRUGS (10)
  1. CLOBAZAM [Interacting]
     Active Substance: CLOBAZAM
     Indication: Epilepsy
     Dosage: 10 MG, BID
     Route: 065
     Dates: start: 20220416, end: 20220418
  2. DOXEPIN [Interacting]
     Active Substance: DOXEPIN
     Indication: Insomnia
     Dosage: 75 MG, QD (NIGHTLY 1.10 MG/KG)
     Route: 065
     Dates: start: 20210108
  3. DOXEPIN [Interacting]
     Active Substance: DOXEPIN
     Dosage: 150 MG, QD (NIGHTLY 2.21 MG/KG)
     Route: 065
     Dates: start: 20210623
  4. DOXEPIN [Interacting]
     Active Substance: DOXEPIN
     Dosage: 200 MG, QD (NIGHTLY 2.94 MG/KG)
     Route: 065
     Dates: start: 20211015
  5. DOXEPIN [Interacting]
     Active Substance: DOXEPIN
     Dosage: 300 MG, QD NIGHTLY
     Route: 065
     Dates: start: 20220407, end: 202204
  6. TOPIRAMATE [Interacting]
     Active Substance: TOPIRAMATE
     Indication: Epilepsy
     Dosage: 150 MG, BID
     Route: 065
     Dates: end: 202204
  7. TOPIRAMATE [Interacting]
     Active Substance: TOPIRAMATE
     Dosage: 200 MG, BID
     Route: 065
     Dates: start: 20220226
  8. LEVETIRACETAM [Concomitant]
     Active Substance: LEVETIRACETAM
     Indication: Epilepsy
     Dosage: 1000 MG, BID
     Route: 065
     Dates: start: 20211106
  9. VALPROIC ACID [Concomitant]
     Active Substance: VALPROIC ACID
     Indication: Epilepsy
     Dosage: 500 MG, QD
     Route: 065
  10. GUANFACINE [Concomitant]
     Active Substance: GUANFACINE
     Indication: Product used for unknown indication
     Dosage: 3 MG, QD
     Route: 065

REACTIONS (8)
  - Fall [Unknown]
  - Electrocardiogram QRS complex prolonged [Recovered/Resolved]
  - Toxicity to various agents [Recovered/Resolved]
  - Condition aggravated [Recovered/Resolved]
  - Drug-genetic interaction [Unknown]
  - Drug interaction [Recovered/Resolved]
  - Encephalopathy [Recovered/Resolved]
  - Bundle branch block right [Recovered/Resolved]

NARRATIVE: CASE EVENT DATE: 20220101
